FAERS Safety Report 5038693-0 (Version None)
Quarter: 2006Q2

REPORT INFORMATION
  Report Type: 
  Country: None (occurrence: None)
  Receive Date: 20060629
  Receipt Date: 20060314
  Transmission Date: 20061013
  Serious: Yes (Other)
  Sender: FDA-Public Use
  Company Number: US-BRISTOL-MYERS SQUIBB COMPANY-13316880

PATIENT
  Age: 25 Year
  Sex: Male

DRUGS (4)
  1. REYATAZ [Suspect]
     Indication: HIV INFECTION
  2. RITONAVIR [Concomitant]
  3. TRUVADA [Concomitant]
  4. AZITHROMYCIN [Concomitant]

REACTIONS (1)
  - STEVENS-JOHNSON SYNDROME [None]
